FAERS Safety Report 15408507 (Version 2)
Quarter: 2018Q4

REPORT INFORMATION
  Report Type: Spontaneous
  Country: US (occurrence: US)
  Receive Date: 20180920
  Receipt Date: 20181002
  Transmission Date: 20190204
  Serious: Yes (Other)
  Sender: FDA-Public Use
  Company Number: US-TEVA-2018-US-954748

PATIENT
  Age: 69 Year
  Sex: Female

DRUGS (5)
  1. ESTRADIOL. [Suspect]
     Active Substance: ESTRADIOL
     Indication: HORMONE REPLACEMENT THERAPY
     Route: 065
  2. ESTRADIOL. [Suspect]
     Active Substance: ESTRADIOL
     Route: 065
  3. ANDROGEL [Concomitant]
     Active Substance: TESTOSTERONE
  4. SPIRONOLACTONE. [Concomitant]
     Active Substance: SPIRONOLACTONE
  5. ESTRADIOL. [Suspect]
     Active Substance: ESTRADIOL
     Route: 065

REACTIONS (6)
  - Psoriatic arthropathy [Unknown]
  - Blood oestrogen increased [Unknown]
  - Somnolence [Unknown]
  - Blood testosterone abnormal [Unknown]
  - Blood testosterone decreased [Unknown]
  - Asthenia [Unknown]
